FAERS Safety Report 6581282-7 (Version None)
Quarter: 2010Q1

REPORT INFORMATION
  Report Type: 
  Country: None (occurrence: None)
  Receive Date: 20100215
  Receipt Date: 20100203
  Transmission Date: 20100710
  Serious: Yes (Other)
  Sender: FDA-Public Use
  Company Number: FR-ABBOTT-10P-056-0624107-00

PATIENT
  Sex: Male

DRUGS (5)
  1. NORVIR [Suspect]
     Indication: HIV INFECTION
     Route: 048
     Dates: start: 20080214, end: 20090620
  2. TRUVADA [Suspect]
     Indication: HIV INFECTION
     Route: 048
     Dates: start: 20080214, end: 20090921
  3. ATAZANAVIR [Suspect]
     Indication: HIV INFECTION
     Route: 048
     Dates: start: 20080214, end: 20090620
  4. SUSTIVA [Concomitant]
     Indication: DRUG USE FOR UNKNOWN INDICATION
     Dates: start: 20090630
  5. COMBIVIR [Concomitant]
     Indication: DRUG USE FOR UNKNOWN INDICATION
     Dates: start: 20090921

REACTIONS (4)
  - GAIT DISTURBANCE [None]
  - MUSCULOSKELETAL PAIN [None]
  - OSTEONECROSIS [None]
  - PAIN IN EXTREMITY [None]
